FAERS Safety Report 23073066 (Version 1)
Quarter: 2023Q4

REPORT INFORMATION
  Report Type: Spontaneous
  Country: US (occurrence: US)
  Receive Date: 20231017
  Receipt Date: 20231017
  Transmission Date: 20240110
  Serious: Yes (Other)
  Sender: FDA-Public Use
  Company Number: US-BRISTOL-MYERS SQUIBB COMPANY-2023-147641

PATIENT
  Age: 74 Year
  Sex: Female

DRUGS (6)
  1. REVLIMID [Suspect]
     Active Substance: LENALIDOMIDE
     Indication: Plasma cell myeloma
     Dosage: DOSE : SEE ATTACHMENT;     FREQ : SEE ATTACHMENT
     Dates: start: 20200114
  2. REVLIMID [Suspect]
     Active Substance: LENALIDOMIDE
     Dosage: DOSE : SEE ATTACHMENT;     FREQ : SEE ATTACHMENT
     Dates: start: 20200223, end: 202006
  3. DEXAMETHASONE [Suspect]
     Active Substance: DEXAMETHASONE
     Indication: Plasma cell myeloma
     Dosage: DOSE : SEE ATTACHMENT;     FREQ : SEE ATTACHMENT
     Dates: start: 20200114
  4. DEXAMETHASONE [Suspect]
     Active Substance: DEXAMETHASONE
     Dosage: DOSE : SEE ATTACHMENT;     FREQ : SEE ATTACHMENT
     Dates: start: 20200223, end: 202006
  5. CARFILZOMIB [Suspect]
     Active Substance: CARFILZOMIB
     Indication: Plasma cell myeloma
     Dosage: DOSE : SEE ATTACHMENT;     FREQ : SEE ATTACHMENT
     Dates: start: 20200114
  6. VELCADE [Suspect]
     Active Substance: BORTEZOMIB
     Indication: Plasma cell myeloma
     Dosage: DOSE : SEE ATTACHMENT;     FREQ : SEE ATTACHMENT
     Dates: start: 20200223, end: 202006

REACTIONS (2)
  - Atrial fibrillation [Unknown]
  - Plasma cell myeloma [Unknown]

NARRATIVE: CASE EVENT DATE: 20200101
